FAERS Safety Report 11918879 (Version 2)
Quarter: 2016Q3

REPORT INFORMATION
  Report Type: Spontaneous
  Country: US (occurrence: US)
  Receive Date: 20160115
  Receipt Date: 20160803
  Transmission Date: 20161109
  Serious: Yes (Other)
  Sender: FDA-Public Use
  Company Number: US-JNJFOC-20151205183

PATIENT
  Age: 54 Year
  Sex: Female

DRUGS (25)
  1. LEVAQUIN [Suspect]
     Active Substance: LEVOFLOXACIN
     Indication: ASTHMA
     Route: 048
     Dates: start: 20101104, end: 20101111
  2. LEVAQUIN [Suspect]
     Active Substance: LEVOFLOXACIN
     Indication: ASTHMA
     Route: 048
     Dates: start: 20080915, end: 20080925
  3. LEVAQUIN [Suspect]
     Active Substance: LEVOFLOXACIN
     Indication: ASTHMA
     Route: 048
     Dates: start: 20051102, end: 20051112
  4. LEVAQUIN [Suspect]
     Active Substance: LEVOFLOXACIN
     Indication: PYELONEPHRITIS
     Route: 048
     Dates: start: 20110509, end: 20110516
  5. LEVAQUIN [Suspect]
     Active Substance: LEVOFLOXACIN
     Indication: PYELONEPHRITIS
     Route: 048
     Dates: start: 20051102, end: 20051112
  6. CIPRO [Suspect]
     Active Substance: CIPROFLOXACIN HYDROCHLORIDE
     Indication: PRODUCT USED FOR UNKNOWN INDICATION
     Route: 048
     Dates: start: 20121009, end: 20121016
  7. LEVAQUIN [Suspect]
     Active Substance: LEVOFLOXACIN
     Indication: ASTHMA
     Route: 048
     Dates: start: 20040716, end: 20040720
  8. CIPRO [Suspect]
     Active Substance: CIPROFLOXACIN HYDROCHLORIDE
     Indication: PRODUCT USED FOR UNKNOWN INDICATION
     Route: 048
     Dates: start: 20101008, end: 20101018
  9. LEVAQUIN [Suspect]
     Active Substance: LEVOFLOXACIN
     Indication: ASTHMA
     Route: 048
     Dates: start: 20060417
  10. LEVAQUIN [Suspect]
     Active Substance: LEVOFLOXACIN
     Indication: ASTHMA
     Route: 048
     Dates: start: 20101220, end: 20101227
  11. LEVAQUIN [Suspect]
     Active Substance: LEVOFLOXACIN
     Indication: ASTHMA
     Route: 048
     Dates: start: 20100131, end: 20100207
  12. LEVAQUIN [Suspect]
     Active Substance: LEVOFLOXACIN
     Indication: ASTHMA
     Route: 048
     Dates: start: 20090331, end: 20091004
  13. LEVAQUIN [Suspect]
     Active Substance: LEVOFLOXACIN
     Indication: PYELONEPHRITIS
     Route: 048
     Dates: start: 20040721, end: 20040730
  14. LEVAQUIN [Suspect]
     Active Substance: LEVOFLOXACIN
     Indication: PYELONEPHRITIS
     Route: 048
     Dates: start: 20101220, end: 20101227
  15. CIPRO [Suspect]
     Active Substance: CIPROFLOXACIN HYDROCHLORIDE
     Indication: PRODUCT USED FOR UNKNOWN INDICATION
     Route: 048
     Dates: start: 20101206
  16. LEVAQUIN [Suspect]
     Active Substance: LEVOFLOXACIN
     Indication: ASTHMA
     Route: 048
     Dates: start: 20110509, end: 20110516
  17. LEVAQUIN [Suspect]
     Active Substance: LEVOFLOXACIN
     Indication: ASTHMA
     Route: 048
     Dates: start: 20080815, end: 20080820
  18. LEVAQUIN [Suspect]
     Active Substance: LEVOFLOXACIN
     Indication: ASTHMA
     Route: 048
     Dates: start: 20040721, end: 20040730
  19. LEVAQUIN [Suspect]
     Active Substance: LEVOFLOXACIN
     Indication: PYELONEPHRITIS
     Route: 048
     Dates: start: 20080915, end: 20080925
  20. LEVAQUIN [Suspect]
     Active Substance: LEVOFLOXACIN
     Indication: PYELONEPHRITIS
     Route: 048
     Dates: start: 20060417
  21. LEVAQUIN [Suspect]
     Active Substance: LEVOFLOXACIN
     Indication: PYELONEPHRITIS
     Route: 048
     Dates: start: 20101104, end: 20101111
  22. LEVAQUIN [Suspect]
     Active Substance: LEVOFLOXACIN
     Indication: PYELONEPHRITIS
     Route: 048
     Dates: start: 20090331, end: 20091004
  23. LEVAQUIN [Suspect]
     Active Substance: LEVOFLOXACIN
     Indication: PYELONEPHRITIS
     Route: 048
     Dates: start: 20040716, end: 20040720
  24. LEVAQUIN [Suspect]
     Active Substance: LEVOFLOXACIN
     Indication: PYELONEPHRITIS
     Route: 048
     Dates: start: 20080815, end: 20080820
  25. LEVAQUIN [Suspect]
     Active Substance: LEVOFLOXACIN
     Indication: PYELONEPHRITIS
     Route: 048
     Dates: start: 20100131, end: 20100207

REACTIONS (2)
  - Neuropathy peripheral [Not Recovered/Not Resolved]
  - Psychiatric symptom [Not Recovered/Not Resolved]

NARRATIVE: CASE EVENT DATE: 201011
